FAERS Safety Report 6824476-5 (Version None)
Quarter: 2010Q3

REPORT INFORMATION
  Report Type: 
  Country: None (occurrence: None)
  Receive Date: 20100708
  Receipt Date: 20061031
  Transmission Date: 20110219
  Serious: No
  Sender: FDA-Public Use
  Company Number: US-PFIZER INC-2006133438

PATIENT
  Sex: Male

DRUGS (4)
  1. CHANTIX [Suspect]
     Dates: start: 20061010, end: 20061030
  2. POTASSIUM CHLORIDE [Concomitant]
     Indication: MUSCLE SPASMS
  3. MAGNESIUM [Concomitant]
     Indication: MUSCLE SPASMS
  4. CEPHALEXIN [Concomitant]
     Indication: NASOPHARYNGITIS

REACTIONS (1)
  - MUSCLE SPASMS [None]
